FAERS Safety Report 15660838 (Version 1)
Quarter: 2018Q4

REPORT INFORMATION
  Report Type: Report from Study
  Country: CA (occurrence: CA)
  Receive Date: 20181127
  Receipt Date: 20181127
  Transmission Date: 20190205
  Serious: Yes (Other)
  Sender: FDA-Public Use
  Company Number: CA-BEH-2018097020

PATIENT
  Age: 51 Year
  Sex: Male

DRUGS (14)
  1. HIZENTRA [Suspect]
     Active Substance: HUMAN IMMUNOGLOBULIN G
     Dosage: 100 ML, TOT
     Route: 058
     Dates: start: 20181030, end: 20181030
  2. GAMMAGARD [Suspect]
     Active Substance: HUMAN IMMUNOGLOBULIN G
     Dosage: 100 G, TOT
     Route: 065
     Dates: start: 20181030
  3. HIZENTRA [Suspect]
     Active Substance: HUMAN IMMUNOGLOBULIN G
     Indication: CHRONIC INFLAMMATORY DEMYELINATING POLYRADICULONEUROPATHY
     Dosage: 40 G, QW
     Route: 058
     Dates: start: 20181011, end: 201811
  4. HIZENTRA [Suspect]
     Active Substance: HUMAN IMMUNOGLOBULIN G
     Dosage: 100 ML, TOT
     Route: 058
     Dates: start: 20181016, end: 20181016
  5. HIZENTRA [Suspect]
     Active Substance: HUMAN IMMUNOGLOBULIN G
     Dosage: 100 ML, TOT
     Route: 058
     Dates: start: 20181023, end: 20181023
  6. HIZENTRA [Suspect]
     Active Substance: HUMAN IMMUNOGLOBULIN G
     Dosage: 100 ML, TOT
     Route: 058
     Dates: start: 20181026, end: 20181026
  7. HIZENTRA [Suspect]
     Active Substance: HUMAN IMMUNOGLOBULIN G
     Dosage: 100 ML, TOT
     Route: 058
     Dates: start: 20181101, end: 20181101
  8. CYMBALTA [Concomitant]
     Active Substance: DULOXETINE HYDROCHLORIDE
  9. HUMAN IMMUNOGLOBULIN IV (INN) [Suspect]
     Active Substance: HUMAN IMMUNOGLOBULIN G
     Indication: PRODUCT USED FOR UNKNOWN INDICATION
     Route: 042
  10. HIZENTRA [Suspect]
     Active Substance: HUMAN IMMUNOGLOBULIN G
     Dosage: 100 ML, TOT
     Route: 058
     Dates: start: 20181018, end: 20181018
  11. HIZENTRA [Suspect]
     Active Substance: HUMAN IMMUNOGLOBULIN G
     Dosage: 100 ML, TOT
     Route: 058
     Dates: start: 20181109, end: 20181109
  12. HIZENTRA [Suspect]
     Active Substance: HUMAN IMMUNOGLOBULIN G
     Dosage: 100 ML, TOT
     Route: 058
     Dates: start: 20181112, end: 20181112
  13. HIZENTRA [Suspect]
     Active Substance: HUMAN IMMUNOGLOBULIN G
     Dosage: 100 ML, TOT
     Route: 058
     Dates: start: 20181106, end: 20181106
  14. ELAVIL [Concomitant]
     Active Substance: AMITRIPTYLINE HYDROCHLORIDE

REACTIONS (69)
  - Pruritus [Unknown]
  - Erythema [Unknown]
  - Headache [Unknown]
  - Swelling [Unknown]
  - Dizziness [Unknown]
  - Erythema [Unknown]
  - Dizziness [Unknown]
  - Pruritus [Unknown]
  - Skin discomfort [Unknown]
  - Fatigue [Unknown]
  - Skin ulcer [Unknown]
  - Headache [Unknown]
  - Skin ulcer [Unknown]
  - Abdominal distension [Unknown]
  - Pruritus [Unknown]
  - Dizziness [Unknown]
  - Skin discomfort [Unknown]
  - Skin ulcer [Unknown]
  - Swelling [Unknown]
  - Erythema [Unknown]
  - Swelling [Unknown]
  - Dizziness [Unknown]
  - Skin discomfort [Unknown]
  - Skin ulcer [Unknown]
  - Swelling [Unknown]
  - Swelling [Unknown]
  - Fatigue [Unknown]
  - Skin discomfort [Unknown]
  - Headache [Unknown]
  - Headache [Unknown]
  - Fatigue [Unknown]
  - Pruritus [Unknown]
  - Abdominal distension [Unknown]
  - Feeling hot [Unknown]
  - Pruritus [Unknown]
  - Swelling [Unknown]
  - Fatigue [Unknown]
  - Skin ulcer [Unknown]
  - Headache [Unknown]
  - Erythema [Unknown]
  - Erythema [Unknown]
  - Abdominal distension [Unknown]
  - Swelling [Unknown]
  - Fatigue [Unknown]
  - Skin discomfort [Unknown]
  - Erythema [Unknown]
  - Pruritus [Unknown]
  - Erythema [Unknown]
  - Swelling [Unknown]
  - Headache [Unknown]
  - Drug ineffective [Unknown]
  - Erythema [Unknown]
  - Fatigue [Unknown]
  - Skin discomfort [Unknown]
  - Skin ulcer [Unknown]
  - Swelling [Unknown]
  - Skin discomfort [Unknown]
  - Pruritus [Unknown]
  - Skin ulcer [Unknown]
  - Fatigue [Unknown]
  - Dizziness [Unknown]
  - Mood altered [Unknown]
  - Skin ulcer [Unknown]
  - Headache [Unknown]
  - Fatigue [Unknown]
  - Skin discomfort [Unknown]
  - Pruritus [Unknown]
  - Headache [Unknown]
  - Feeling hot [Unknown]

NARRATIVE: CASE EVENT DATE: 2018
